FAERS Safety Report 5305634-8 (Version None)
Quarter: 2007Q2

REPORT INFORMATION
  Report Type: 
  Country: None (occurrence: None)
  Receive Date: 20070419
  Receipt Date: 20070419
  Transmission Date: 20071010
  Serious: No
  Sender: FDA-Public Use
  Company Number: None

PATIENT
  Sex: Female
  Weight: 105 kg

DRUGS (2)
  1. TEMOZOLOMIDE [Suspect]
     Dosage: 860 MG
  2. TEMOZOLOMIDE [Suspect]

REACTIONS (1)
  - HERPES ZOSTER [None]
